FAERS Safety Report 25657098 (Version 1)
Quarter: 2025Q3

REPORT INFORMATION
  Report Type: Spontaneous
  Country: EU (occurrence: EU)
  Receive Date: 20250808
  Receipt Date: 20250808
  Transmission Date: 20251021
  Serious: Yes (Hospitalization, Other)
  Sender: BRISTOL-MYERS SQUIBB COMPANY
  Company Number: EU-JNJFOC-20250804074

PATIENT
  Age: 71 Year
  Sex: Female

DRUGS (5)
  1. LENALIDOMIDE [Suspect]
     Active Substance: LENALIDOMIDE
     Indication: Plasma cell myeloma
     Route: 048
     Dates: start: 20190724, end: 20250728
  2. TOLODODEKIN ALFA [Suspect]
     Active Substance: TOLODODEKIN ALFA
     Indication: Plasma cell myeloma
     Route: 058
     Dates: start: 20190624, end: 20250701
  3. MOXIFLOXACIN [Concomitant]
     Active Substance: MOXIFLOXACIN
     Indication: Infection
     Route: 048
     Dates: start: 20250720, end: 20250724
  4. MOXIFLOXACIN [Concomitant]
     Active Substance: MOXIFLOXACIN
     Route: 042
     Dates: start: 20250718, end: 20250720
  5. ACYCLOVIR [Concomitant]
     Active Substance: ACYCLOVIR
     Indication: Encephalitis herpes
     Route: 042
     Dates: start: 20250718, end: 20250728

REACTIONS (1)
  - Encephalitis viral [Recovered/Resolved]

NARRATIVE: CASE EVENT DATE: 20250716
